FAERS Safety Report 14093345 (Version 1)
Quarter: 2017Q4

REPORT INFORMATION
  Report Type: Spontaneous
  Country: US (occurrence: US)
  Receive Date: 20171016
  Receipt Date: 20171016
  Transmission Date: 20180321
  Serious: No
  Sender: FDA-Public Use
  Company Number: None

PATIENT
  Sex: Female
  Weight: 45 kg

DRUGS (1)
  1. PROLIA [Suspect]
     Active Substance: DENOSUMAB
     Dosage: ?          OTHER FREQUENCY:EVERY 6 MOS;?
     Route: 058
     Dates: start: 20170810

REACTIONS (2)
  - Myalgia [None]
  - Bone pain [None]

NARRATIVE: CASE EVENT DATE: 20171001
